FAERS Safety Report 23299710 (Version 1)
Quarter: 2023Q4

REPORT INFORMATION
  Report Type: Spontaneous
  Country: US (occurrence: US)
  Receive Date: 20231215
  Receipt Date: 20231215
  Transmission Date: 20240110
  Serious: Yes (Other)
  Sender: FDA-Public Use
  Company Number: US-HALEON-USCH2023061721

PATIENT
  Age: 40 Year
  Sex: Male

DRUGS (1)
  1. GAS-X EXTRA STRENGTH SOFTGELS [Suspect]
     Active Substance: DIMETHICONE
     Indication: Product used for unknown indication
     Dosage: 1 DF, QD
     Dates: start: 20231206

REACTIONS (2)
  - Angina pectoris [Unknown]
  - Haematochezia [Unknown]

NARRATIVE: CASE EVENT DATE: 20231206
